FAERS Safety Report 21086858 (Version 1)
Quarter: 2022Q3

REPORT INFORMATION
  Report Type: Spontaneous
  Country: US (occurrence: None)
  Receive Date: 20220715
  Receipt Date: 20220715
  Transmission Date: 20221027
  Serious: No
  Sender: FDA-Public Use
  Company Number: US-SUPERNUS Pharmaceuticals, Inc.-SUP202207-001889

PATIENT
  Age: 80 Year
  Sex: Female

DRUGS (14)
  1. QELBREE [Suspect]
     Active Substance: VILOXAZINE HYDROCHLORIDE
     Indication: Attention deficit hyperactivity disorder
     Dates: start: 20220617, end: 20220629
  2. DULOXETINE [Suspect]
     Active Substance: DULOXETINE
     Indication: Product used for unknown indication
     Dosage: NOT PROVIDED
  3. BUDESONIDE [Concomitant]
     Active Substance: BUDESONIDE
     Dosage: NOT PROVIDED
  4. VITAMIN C [Concomitant]
     Active Substance: ASCORBIC ACID
     Dosage: NOT PROVIDED
  5. VITAMIN B12 [Concomitant]
     Active Substance: CYANOCOBALAMIN
     Dosage: NOT PROVIDED
  6. Multiple vitamin B [Concomitant]
     Dosage: NOT PROVIDED
  7. CALCIUM [Concomitant]
     Active Substance: CALCIUM
     Dosage: NOT PROVIDED
  8. VITAMIN D3 [Concomitant]
     Active Substance: CHOLECALCIFEROL
     Dosage: NOT PROVIDED
  9. POTASSIUM [Concomitant]
     Active Substance: POTASSIUM
     Dosage: NOT PROVIDED
  10. MINERALS\VITAMINS [Concomitant]
     Active Substance: MINERALS\VITAMINS
     Dosage: NOT PROVIDED
  11. COENZYME Q10 [Concomitant]
     Active Substance: DIETARY SUPPLEMENT\UBIDECARENONE
     Dosage: NOT PROVIDED
  12. FISH OIL [Concomitant]
     Active Substance: FISH OIL
     Dosage: NOT PROVIDED
  13. Fumaric [Concomitant]
     Dosage: NOT PROVIDED
  14. ESTROGENS [Concomitant]
     Active Substance: ESTROGENS
     Dosage: NOT PROVIDED

REACTIONS (6)
  - Pruritus [Unknown]
  - Skin lesion [Unknown]
  - Skin irritation [Unknown]
  - Rash [Unknown]
  - Contraindicated product administered [Unknown]
  - Drug interaction [Unknown]

NARRATIVE: CASE EVENT DATE: 20220601
